FAERS Safety Report 24130079 (Version 3)
Quarter: 2024Q4

REPORT INFORMATION
  Report Type: Report from Study
  Country: US (occurrence: US)
  Receive Date: 20240724
  Receipt Date: 20241122
  Transmission Date: 20250115
  Serious: Yes (Other)
  Sender: BIOGEN
  Company Number: US-BIOGEN-2024BI01274447

PATIENT
  Sex: Male

DRUGS (2)
  1. PLEGRIDY [Interacting]
     Active Substance: PEGINTERFERON BETA-1A
     Indication: Multiple sclerosis
     Route: 050
     Dates: start: 20180902
  2. PLEGRIDY [Interacting]
     Active Substance: PEGINTERFERON BETA-1A
     Route: 050
     Dates: start: 20181119, end: 202408

REACTIONS (9)
  - Left ventricular failure [Not Recovered/Not Resolved]
  - Coronary artery occlusion [Not Recovered/Not Resolved]
  - Pulmonary oedema [Not Recovered/Not Resolved]
  - Cardiomyopathy [Not Recovered/Not Resolved]
  - Hypotension [Recovered/Resolved]
  - Hypometabolism [Unknown]
  - Drug interaction [Unknown]
  - Respiratory syncytial virus infection [Unknown]
  - COVID-19 [Unknown]

NARRATIVE: CASE EVENT DATE: 20240101
